FAERS Safety Report 5053538-0 (Version None)
Quarter: 2006Q3

REPORT INFORMATION
  Report Type: 
  Country: None (occurrence: None)
  Receive Date: 20060712
  Receipt Date: 20060623
  Transmission Date: 20061208
  Serious: Yes (Hospitalization)
  Sender: FDA-Public Use
  Company Number: ES200602002928

PATIENT
  Age: 84 Year
  Sex: Female

DRUGS (3)
  1. FORTEO [Suspect]
     Indication: OSTEOPOROSIS
     Dosage: 20 U DAILY (1/D) SUBCUTANEOUS
     Route: 058
     Dates: start: 20060124
  2. FORTEO PEN (FORTEO PEN) [Concomitant]
  3. CORTISONE ACETATE [Concomitant]

REACTIONS (2)
  - PYREXIA [None]
  - RED BLOOD CELL SEDIMENTATION RATE INCREASED [None]
